FAERS Safety Report 6145696-1 (Version None)
Quarter: 2009Q2

REPORT INFORMATION
  Report Type: 
  Country: None (occurrence: None)
  Receive Date: 20090407
  Receipt Date: 20090402
  Transmission Date: 20091009
  Serious: Yes (Other)
  Sender: FDA-Public Use
  Company Number: GB-WYE-G03449909

PATIENT
  Sex: Female

DRUGS (1)
  1. TAZOCIN [Suspect]
     Dosage: 1 DOSE EVERY 1 TOT
     Route: 042

REACTIONS (2)
  - ANAPHYLACTIC REACTION [None]
  - CARDIO-RESPIRATORY ARREST [None]
